FAERS Safety Report 10464607 (Version 1)
Quarter: 2014Q3

REPORT INFORMATION
  Report Type: Report from Study
  Country: CA (occurrence: CA)
  Receive Date: 20140919
  Receipt Date: 20140919
  Transmission Date: 20150326
  Serious: Yes (Hospitalization)
  Sender: FDA-Public Use
  Company Number: CA-ABBVIE-14K-028-1284265-00

PATIENT
  Age: 77 Year
  Sex: Male

DRUGS (2)
  1. HUMIRA [Suspect]
     Active Substance: ADALIMUMAB
     Indication: PSORIASIS
     Route: 058
     Dates: start: 20110119, end: 2014
  2. HUMIRA [Suspect]
     Active Substance: ADALIMUMAB
     Dates: start: 201408

REACTIONS (3)
  - Urinary tract infection [Unknown]
  - Vertigo [Not Recovered/Not Resolved]
  - Varicose vein [Unknown]

NARRATIVE: CASE EVENT DATE: 201407
